FAERS Safety Report 7693350-7 (Version None)
Quarter: 2011Q3

REPORT INFORMATION
  Report Type: 
  Country: None (occurrence: None)
  Receive Date: 20110819
  Receipt Date: 20110815
  Transmission Date: 20111222
  Serious: Yes (Other)
  Sender: FDA-Public Use
  Company Number: BR-PFIZER INC-2011187975

PATIENT
  Age: 61 Year
  Sex: Female

DRUGS (2)
  1. LYRICA [Suspect]
     Dosage: TWO CAPSULES OF 150MG
     Route: 048
     Dates: start: 20110501
  2. LYRICA [Suspect]
     Indication: DIABETIC NEUROPATHY
     Dosage: TWO CAPSULES OF 75MG
     Route: 048
     Dates: start: 20110201, end: 20110501

REACTIONS (1)
  - BLOOD URIC ACID INCREASED [None]
